FAERS Safety Report 24704635 (Version 6)
Quarter: 2025Q1

REPORT INFORMATION
  Report Type: Spontaneous
  Country: CN (occurrence: CN)
  Receive Date: 20241206
  Receipt Date: 20250128
  Transmission Date: 20250409
  Serious: Yes (Death, Life-Threatening, Hospitalization, Other)
  Sender: ROCHE
  Company Number: CN-ROCHE-10000145457

PATIENT
  Age: 84 Year
  Sex: Male

DRUGS (1)
  1. ATEZOLIZUMAB [Suspect]
     Active Substance: ATEZOLIZUMAB
     Indication: Lung adenocarcinoma
     Route: 065
     Dates: start: 20240925

REACTIONS (65)
  - Dyspnoea [Unknown]
  - Cardiac failure [Unknown]
  - Multiple organ dysfunction syndrome [Fatal]
  - Loss of consciousness [Unknown]
  - Cardiogenic shock [Fatal]
  - Blood albumin decreased [Unknown]
  - Lymphocyte count decreased [Unknown]
  - Blood creatine phosphokinase decreased [Unknown]
  - Blood sodium decreased [Unknown]
  - Blood chloride decreased [Unknown]
  - Cardiac failure acute [Unknown]
  - Blood phosphorus decreased [Unknown]
  - Aspartate aminotransferase increased [Unknown]
  - Blood lactate dehydrogenase increased [Unknown]
  - Blood creatine phosphokinase increased [Unknown]
  - Bilirubin conjugated increased [Unknown]
  - Protein total decreased [Unknown]
  - Blood cholinesterase decreased [Unknown]
  - Blood glucose increased [Unknown]
  - Adenosine deaminase increased [Unknown]
  - Blood urea increased [Unknown]
  - Blood creatinine increased [Unknown]
  - Dyspnoea [Unknown]
  - Blood osmolarity decreased [Unknown]
  - Blood fibrinogen increased [Unknown]
  - Neutrophil count increased [Unknown]
  - Eosinophil count decreased [Unknown]
  - Haematocrit decreased [Unknown]
  - C-reactive protein increased [Unknown]
  - Blood creatine phosphokinase MB increased [Unknown]
  - Blood uric acid increased [Unknown]
  - White blood cell count increased [Unknown]
  - Red blood cell count decreased [Unknown]
  - Haemoglobin decreased [Unknown]
  - Blood lactic acid increased [Unknown]
  - Brain natriuretic peptide [Unknown]
  - Blood calcium decreased [Unknown]
  - Vomiting [Unknown]
  - Blood bilirubin increased [Unknown]
  - Blood ketone body increased [Unknown]
  - Urinary occult blood [Unknown]
  - Ventricular hypokinesia [Unknown]
  - Left ventricular dysfunction [Unknown]
  - Aortic arteriosclerosis [Unknown]
  - Tricuspid valve incompetence [Unknown]
  - Tachycardia [Unknown]
  - Pericardial effusion [Unknown]
  - Pulmonary mass [Unknown]
  - Pneumonitis [Unknown]
  - Pleural effusion [Unknown]
  - Procalcitonin increased [Unknown]
  - Interleukin level increased [Unknown]
  - Blood phosphorus increased [Unknown]
  - Blood magnesium increased [Unknown]
  - Blood bilirubin increased [Unknown]
  - Bilirubin conjugated increased [Unknown]
  - Globulins decreased [Unknown]
  - Alanine aminotransferase increased [Unknown]
  - Adenosine deaminase increased [Unknown]
  - Oxygen saturation decreased [Unknown]
  - White blood cell count decreased [Unknown]
  - Platelet count decreased [Unknown]
  - Candida test positive [Unknown]
  - Cardiac arrest [Fatal]
  - Heart rate increased [Unknown]

NARRATIVE: CASE EVENT DATE: 20240926
